FAERS Safety Report 18915761 (Version 2)
Quarter: 2021Q1

REPORT INFORMATION
  Report Type: Spontaneous
  Country: US (occurrence: US)
  Receive Date: 20210219
  Receipt Date: 20210324
  Transmission Date: 20210420
  Serious: Yes (Death, Disabling, Other)
  Sender: FDA-Public Use
  Company Number: US-ASTRAZENECA-2021A035364

PATIENT
  Age: 21867 Day
  Sex: Male
  Weight: 68 kg

DRUGS (1)
  1. IMFINZI [Suspect]
     Active Substance: DURVALUMAB
     Indication: LUNG NEOPLASM MALIGNANT
     Dosage: ABOUT 4 WEEKS AGO ONCE/SINGLE ADMINISTRATION
     Route: 042

REACTIONS (16)
  - Asthenia [Unknown]
  - Myalgia [Not Recovered/Not Resolved]
  - Nausea [Not Recovered/Not Resolved]
  - Haemoptysis [Unknown]
  - Pneumonia [Unknown]
  - Cough [Fatal]
  - Dyspnoea [Fatal]
  - Weight decreased [Not Recovered/Not Resolved]
  - Respiratory tract congestion [Unknown]
  - Lower respiratory tract infection [Unknown]
  - Rheumatoid arthritis [Fatal]
  - Arthralgia [Unknown]
  - Pain [Unknown]
  - Gait disturbance [Not Recovered/Not Resolved]
  - Abdominal pain [Unknown]
  - Bone pain [Not Recovered/Not Resolved]

NARRATIVE: CASE EVENT DATE: 20210228
